FAERS Safety Report 4457352-6 (Version None)
Quarter: 2004Q3

REPORT INFORMATION
  Report Type: 
  Country: None (occurrence: None)
  Receive Date: 20040921
  Receipt Date: 20040907
  Transmission Date: 20050211
  Serious: Yes (Hospitalization)
  Sender: FDA-Public Use
  Company Number: B0344957A

PATIENT
  Age: 46 Year
  Sex: Female

DRUGS (4)
  1. ZANTAC 150 [Suspect]
     Indication: GASTRIC ULCER
     Dosage: 150 MG/TWICE PER DAY/ORAL
     Route: 048
     Dates: start: 20040810, end: 20040831
  2. IRSOGLADINE MALEATE [Concomitant]
  3. GEFARNATE [Concomitant]
  4. DIMETHICONE [Concomitant]

REACTIONS (3)
  - BLOOD CREATINE PHOSPHOKINASE INCREASED [None]
  - LIVER FUNCTION TEST ABNORMAL [None]
  - MYALGIA [None]
